FAERS Safety Report 14933621 (Version 1)
Quarter: 2018Q2

REPORT INFORMATION
  Report Type: Spontaneous
  Country: US (occurrence: US)
  Receive Date: 20180504
  Receipt Date: 20180504
  Transmission Date: 20180711
  Serious: Yes (Hospitalization)
  Sender: FDA-Public Use
  Company Number: None

PATIENT
  Age: 2 Year
  Sex: Male

DRUGS (7)
  1. NUTROPIN AQ NUSPIN 5 [Suspect]
     Active Substance: SOMATROPIN
     Indication: SHORT-BOWEL SYNDROME
     Route: 058
     Dates: start: 20171103
  2. SMZ/TMP [Concomitant]
     Active Substance: SULFAMETHOXAZOLE\TRIMETHOPRIM
  3. MYCOPHENOLAT SUS [Concomitant]
  4. NITROFURANTINSUS [Concomitant]
  5. MONTELUKAST [Concomitant]
     Active Substance: MONTELUKAST SODIUM
  6. VALGANCICLOV [Concomitant]
  7. NYSTATIN. [Concomitant]
     Active Substance: NYSTATIN

REACTIONS (1)
  - Renal transplant [None]

NARRATIVE: CASE EVENT DATE: 201804
